FAERS Safety Report 26143699 (Version 1)
Quarter: 2025Q4

REPORT INFORMATION
  Report Type: Spontaneous
  Country: US (occurrence: US)
  Receive Date: 20251211
  Receipt Date: 20251211
  Transmission Date: 20260118
  Serious: No
  Sender: ALVOGEN
  Company Number: US-ALVOGEN-2025098784

PATIENT
  Sex: Female

DRUGS (2)
  1. LEVOTHYROXINE [Suspect]
     Active Substance: LEVOTHYROXINE
     Indication: Autoimmune thyroiditis
  2. ESTRADIOL [Suspect]
     Active Substance: ESTRADIOL
     Indication: Product used for unknown indication
     Route: 062

REACTIONS (1)
  - Tri-iodothyronine decreased [Unknown]
